FAERS Safety Report 21554208 (Version 1)
Quarter: 2022Q4

REPORT INFORMATION
  Report Type: Spontaneous
  Country: OM (occurrence: None)
  Receive Date: 20221104
  Receipt Date: 20221104
  Transmission Date: 20230113
  Serious: Yes (Other)
  Sender: FDA-Public Use
  Company Number: OM-ROCHE-3211930

PATIENT
  Age: 50 Year
  Sex: Female

DRUGS (3)
  1. XELODA [Suspect]
     Active Substance: CAPECITABINE
     Indication: Pancreatic carcinoma
     Dosage: 600 - 1000 MG/M2?DAY 1 TO DAY 14: 2-TAB BID, FOLLOWING 6 DAYS OF CAPECITABINE ONE GRAM BD.
     Route: 048
     Dates: start: 20221017
  2. URIDINE TRIACETATE [Concomitant]
     Active Substance: URIDINE TRIACETATE
     Dosage: EVERY 6 HOURS FOR 20 DOSES
  3. TEMOZOLOMIDE [Concomitant]
     Active Substance: TEMOZOLOMIDE
     Dosage: 150-200MG/M2 IN 2 DIVIDED DOSE DAY 10 TO DAY 14.
     Dates: start: 20221017

REACTIONS (7)
  - Mucosal inflammation [Unknown]
  - Myelosuppression [Unknown]
  - Odynophagia [Unknown]
  - Dysphagia [Unknown]
  - Skin toxicity [Unknown]
  - Dihydropyrimidine dehydrogenase deficiency [Unknown]
  - Off label use [Unknown]
